FAERS Safety Report 8613650-3 (Version None)
Quarter: 2012Q3

REPORT INFORMATION
  Report Type: 
  Country: None (occurrence: None)
  Receive Date: 20120823
  Receipt Date: 20120809
  Transmission Date: 20120928
  Serious: Yes (Death, Other)
  Sender: FDA-Public Use
  Company Number: US-009507513-1207USA009887

PATIENT

DRUGS (2)
  1. NOROXIN [Suspect]
     Route: 048
  2. SIMVASTATIN [Interacting]

REACTIONS (2)
  - RHABDOMYOLYSIS [None]
  - DRUG INTERACTION [None]
